FAERS Safety Report 9188048 (Version 1)
Quarter: 2013Q1

REPORT INFORMATION
  Report Type: Spontaneous
  Country: US (occurrence: US)
  Receive Date: 20130325
  Receipt Date: 20130325
  Transmission Date: 20140127
  Serious: No
  Sender: FDA-Public Use
  Company Number: US-MYLANLABS-2013S1000383

PATIENT
  Age: 68 Year
  Sex: Female
  Weight: 58.97 kg

DRUGS (3)
  1. FENTANYL TRANSDERMAL SYSTEM [Suspect]
     Indication: PAIN
     Dosage: CHANGED Q72H
     Route: 062
     Dates: start: 20121228
  2. CLONAZEPAM [Concomitant]
     Indication: ANXIETY
     Route: 048
  3. SYNTHROID [Concomitant]
     Indication: THYROID DISORDER
     Route: 048

REACTIONS (5)
  - Drug ineffective [Not Recovered/Not Resolved]
  - Pain [Not Recovered/Not Resolved]
  - Disorientation [Not Recovered/Not Resolved]
  - Agitation [Not Recovered/Not Resolved]
  - Feeling jittery [Not Recovered/Not Resolved]
